FAERS Safety Report 7844477-8 (Version None)
Quarter: 2011Q4

REPORT INFORMATION
  Report Type: 
  Country: None (occurrence: None)
  Receive Date: 20111025
  Receipt Date: 20111014
  Transmission Date: 20120403
  Serious: Yes (Other)
  Sender: FDA-Public Use
  Company Number: JP-JNJFOC-20110905624

PATIENT
  Sex: Female
  Weight: 46 kg

DRUGS (12)
  1. LECTISOL [Concomitant]
     Indication: PYODERMA GANGRENOSUM
     Route: 048
     Dates: start: 20110727
  2. REMICADE [Suspect]
     Dosage: 1ST INFUSION
     Route: 042
     Dates: start: 20110722
  3. LAC-B [Concomitant]
     Indication: COLITIS ULCERATIVE
     Dosage: 3 GRAM AND 1 GRAM
     Route: 048
     Dates: start: 20100512
  4. SELBEX [Concomitant]
     Indication: GASTRITIS
     Route: 048
     Dates: start: 20110513
  5. EKSALB [Concomitant]
     Indication: ECZEMA
     Route: 061
     Dates: start: 20110810
  6. REMICADE [Suspect]
     Indication: COLITIS ULCERATIVE
     Dosage: SECOND INFUSION
     Route: 042
     Dates: start: 20110805
  7. PREDNISOLONE [Suspect]
     Indication: COLITIS ULCERATIVE
     Route: 048
     Dates: start: 20110824
  8. BETAMETHASONE [Concomitant]
     Indication: COLITIS ULCERATIVE
     Route: 054
     Dates: start: 20101105
  9. ASACOL [Concomitant]
     Indication: COLITIS ULCERATIVE
     Dosage: 2400MG -800MG
     Route: 048
     Dates: start: 20110202
  10. DEPAS [Concomitant]
     Indication: ANXIETY DISORDER
     Dosage: 1MG AND 0.5MG
     Route: 048
     Dates: start: 20100917
  11. FERROUS CITRATE [Concomitant]
     Indication: IRON DEFICIENCY ANAEMIA
     Route: 048
     Dates: start: 20110525
  12. ACTONEL [Concomitant]
     Indication: OSTEOPOROSIS
     Dosage: 17.5 MG/W
     Route: 048
     Dates: start: 20110525

REACTIONS (3)
  - ATYPICAL MYCOBACTERIAL INFECTION [None]
  - TUBERCULOSIS [None]
  - PNEUMONIA [None]
